FAERS Safety Report 8795930 (Version 1)
Quarter: 2012Q4

REPORT INFORMATION
  Report Type: 
  Country: US (occurrence: US)
  Receive Date: 20120919
  Receipt Date: 20120919
  Transmission Date: 20130627
  Serious: Yes (Other)
  Sender: FDA-Public Use
  Company Number: US-PFIZER INC-2012231017

PATIENT
  Sex: Male

DRUGS (1)
  1. CHANTIX [Suspect]
     Dosage: UNK

REACTIONS (7)
  - Suicidal ideation [Unknown]
  - Bipolar disorder [Unknown]
  - Schizophrenia [Unknown]
  - Mood swings [Unknown]
  - Paranoia [Unknown]
  - Mental disorder [Unknown]
  - Morbid thoughts [Unknown]
